FAERS Safety Report 15543980 (Version 4)
Quarter: 2019Q2

REPORT INFORMATION
  Report Type: Spontaneous
  Country: US (occurrence: US)
  Receive Date: 20181023
  Receipt Date: 20190516
  Transmission Date: 20190711
  Serious: Yes (Other)
  Sender: FDA-Public Use
  Company Number: US-PFIZER INC-2018423833

PATIENT
  Age: 60 Year
  Sex: Female

DRUGS (1)
  1. XELJANZ XR [Suspect]
     Active Substance: TOFACITINIB CITRATE
     Dosage: 11 MG, UNK
     Dates: start: 201809

REACTIONS (15)
  - Ligament sprain [Unknown]
  - Arthropod bite [Unknown]
  - Migraine [Unknown]
  - Respiratory disorder [Unknown]
  - Rhinorrhoea [Unknown]
  - Fall [Unknown]
  - Urinary tract infection [Unknown]
  - Nasal congestion [Not Recovered/Not Resolved]
  - Peripheral swelling [Unknown]
  - Loss of consciousness [Unknown]
  - Ear infection [Unknown]
  - Product dose omission [Unknown]
  - Condition aggravated [Unknown]
  - Chronic sinusitis [Unknown]
  - Arthralgia [Unknown]
